FAERS Safety Report 7967685-4 (Version None)
Quarter: 2011Q4

REPORT INFORMATION
  Report Type: 
  Country: None (occurrence: None)
  Receive Date: 20111208
  Receipt Date: 20111208
  Transmission Date: 20120403
  Serious: Yes (Hospitalization)
  Sender: FDA-Public Use
  Company Number: None

PATIENT
  Age: 52 Year
  Sex: Male
  Weight: 54.8852 kg

DRUGS (1)
  1. DAPTOMYCIN [Suspect]
     Indication: DEVICE RELATED INFECTION
     Dosage: DAPTOMYCIN DOSE  IV
     Route: 041
     Dates: start: 20111104, end: 20111129

REACTIONS (1)
  - EOSINOPHILIC PNEUMONIA [None]
